FAERS Safety Report 6088200-9 (Version None)
Quarter: 2009Q1

REPORT INFORMATION
  Report Type: 
  Country: None (occurrence: None)
  Receive Date: 20090224
  Receipt Date: 20090218
  Transmission Date: 20090719
  Serious: Yes (Other)
  Sender: FDA-Public Use
  Company Number: GB-JNJFOC-20081100054

PATIENT

DRUGS (2)
  1. RISPERDAL [Suspect]
     Indication: DRUG EXPOSURE VIA BREAST MILK
     Route: 064
  2. RISPERDAL [Suspect]
     Indication: DRUG EXPOSURE DURING PREGNANCY
     Route: 064

REACTIONS (2)
  - DRUG EXPOSURE VIA BREAST MILK [None]
  - WITHDRAWAL SYNDROME [None]
